FAERS Safety Report 23085099 (Version 1)
Quarter: 2023Q4

REPORT INFORMATION
  Report Type: Spontaneous
  Country: ES (occurrence: ES)
  Receive Date: 20231019
  Receipt Date: 20231019
  Transmission Date: 20240110
  Serious: Yes (Hospitalization, Other)
  Sender: FDA-Public Use
  Company Number: ES-FreseniusKabi-FK202316791

PATIENT
  Age: 56 Year
  Sex: Female

DRUGS (20)
  1. CARBOPLATIN [Suspect]
     Active Substance: CARBOPLATIN
     Indication: Ovarian cancer
     Dosage: FIRST LINE THERAPY?FOUR CYCLES?(AUC 5)?EVERY 21 DAYS
     Dates: start: 201509
  2. CARBOPLATIN [Suspect]
     Active Substance: CARBOPLATIN
     Dosage: FOLLOWING SURGERY, TWO FURTHER CYCLES OF CHEMOTHERAPY WERE ADMINISTERED WITH THE SAME SCHEDULE. (CAR
  3. CARBOPLATIN [Suspect]
     Active Substance: CARBOPLATIN
     Dosage: SECOND LINE THERAPY?(AUC 5)?ON DAY 1, EVERY 3 WEEKS
     Dates: start: 201704
  4. CARBOPLATIN [Suspect]
     Active Substance: CARBOPLATIN
     Dosage: THIRD LINE THERAPY?(AUC 5)?EVERY 21 DAYS AS PART OF THE ATALANTE CLINICAL TRIAL
     Dates: start: 201811
  5. PACLITAXEL [Suspect]
     Active Substance: PACLITAXEL
     Indication: Ovarian cancer
     Dosage: FIRST LINE THERAPY?FOUR CYCLES?EVERY 21 DAYS
     Dates: start: 201509
  6. PACLITAXEL [Suspect]
     Active Substance: PACLITAXEL
     Dosage: FOLLOWING SURGERY, TWO FURTHER CYCLES OF CHEMOTHERAPY WERE ADMINISTERED WITH THE SAME SCHEDULE. (CAR
  7. PACLITAXEL [Suspect]
     Active Substance: PACLITAXEL
     Dosage: FIFTH LINE THERAPY?TWO CYCLES?EVERY 21 DAYS
  8. BEVACIZUMAB [Suspect]
     Active Substance: BEVACIZUMAB
     Indication: Ovarian cancer
     Dosage: FIRST LINE THERAPY?FOUR CYCLES?EVERY 21 DAYS
     Dates: start: 201509, end: 201701
  9. BEVACIZUMAB [Suspect]
     Active Substance: BEVACIZUMAB
     Dosage: FOLLOWING SURGERY, TWO FURTHER CYCLES OF CHEMOTHERAPY WERE ADMINISTERED WITH THE SAME SCHEDULE. (CAR
     Dates: start: 201509, end: 201701
  10. BEVACIZUMAB [Suspect]
     Active Substance: BEVACIZUMAB
     Dosage: THIRD LINE THERAPY?EVERY 21 DAYS
     Dates: start: 201509, end: 201701
  11. GEMCITABINE [Concomitant]
     Active Substance: GEMCITABINE
     Indication: Ovarian cancer
     Dosage: SECOND LINE THERAPY?ON DAYS 1 AND 8 EVERY 3 WEEKS.
     Dates: start: 201509, end: 201701
  12. GEMCITABINE [Concomitant]
     Active Substance: GEMCITABINE
     Dosage: THIRD LINE THERAPY?EVERY 21 DAYS AS PART OF THE ATALANTE CLINICAL TRIAL
     Dates: start: 201509, end: 201701
  13. OLAPARIB [Concomitant]
     Active Substance: OLAPARIB
     Indication: Ovarian cancer
     Dosage: SECOND LINE THERAPY?(EIGHT 50 MG CAPSULES EVERY 12 H)
     Dates: start: 201709
  14. ATEZOLIZUMAB [Concomitant]
     Active Substance: ATEZOLIZUMAB
     Indication: Ovarian cancer
     Dosage: THIRD LINE THERAPY?PLACEBO (BLIND NOT REVEALED)
     Dates: start: 201811
  15. CISPLATIN [Concomitant]
     Active Substance: CISPLATIN
     Indication: Ovarian cancer
     Dosage: THIRD LINE THERAPY
     Dates: start: 201811
  16. TRABECTEDIN [Concomitant]
     Active Substance: TRABECTEDIN
     Indication: Ovarian cancer
     Dosage: FIFTH LINE LINE THERAPY?FOLLOWING NINE CYCLES OF TREATMENT WITH TRABECTEDIN + PLD
  17. TRABECTEDIN [Concomitant]
     Active Substance: TRABECTEDIN
     Dosage: FOURTH LINE LINE THERAPY?EVERY 21 DAYS WAS INITIATED
     Dates: start: 202003
  18. DOXORUBICIN HYDROCHLORIDE [Concomitant]
     Active Substance: DOXORUBICIN HYDROCHLORIDE
     Indication: Ovarian cancer
     Dosage: FOURTH LINE LINE THERAPY?EVERY 21 DAYS WAS INITIATED
  19. DOXORUBICIN HYDROCHLORIDE [Concomitant]
     Active Substance: DOXORUBICIN HYDROCHLORIDE
     Dosage: FIFTH LINE LINE THERAPY?FOLLOWING NINE CYCLES OF TREATMENT WITH TRABECTEDIN + PLD
     Dates: start: 202003
  20. TOPOTECAN [Concomitant]
     Active Substance: TOPOTECAN HYDROCHLORIDE
     Indication: Ovarian cancer
     Dosage: SIXTH LINE LINE THERAPY?4 MG/M2 ON DAYS 1, 8, AND 15 EVERY 4 WEEKS.
     Dates: start: 202003

REACTIONS (3)
  - Anaphylactic reaction [Unknown]
  - Anaemia [Unknown]
  - Hypersensitivity [Unknown]
